FAERS Safety Report 9752959 (Version 1)
Quarter: 2013Q4

REPORT INFORMATION
  Report Type: Spontaneous
  Country: US (occurrence: None)
  Receive Date: 20131212
  Receipt Date: 20131212
  Transmission Date: 20140711
  Serious: Yes (Hospitalization, Disabling, Congenital Anomaly, Other)
  Sender: FDA-Public Use
  Company Number: None

PATIENT
  Age: 20 Year
  Sex: Male
  Weight: 112.7 kg

DRUGS (11)
  1. DEPAKOTE GENERIC [Suspect]
     Indication: OBSESSIVE-COMPULSIVE DISORDER
     Dosage: 3380 MILLIGRAM, DAY AND NIGHT ORAL
     Route: 048
     Dates: start: 1983
  2. ABILIFY GENERIC [Suspect]
     Indication: BIPOLAR DISORDER
  3. ATIVAN [Suspect]
  4. LITHIUM [Suspect]
  5. ZYPREXA [Suspect]
  6. ANTANUAL [Suspect]
  7. DEPAKOTE [Concomitant]
  8. AMBIEN [Concomitant]
  9. ABILIFY [Concomitant]
  10. HALDOL [Concomitant]
  11. RESPIRDOL [Concomitant]

REACTIONS (9)
  - Thinking abnormal [None]
  - Victim of abuse [None]
  - Bronchitis [None]
  - Infectious mononucleosis [None]
  - Oral herpes [None]
  - Tinea infection [None]
  - Acne [None]
  - Acne [None]
  - Furuncle [None]
